FAERS Safety Report 4722583-4 (Version None)
Quarter: 2005Q3

REPORT INFORMATION
  Report Type: 
  Country: None (occurrence: None)
  Receive Date: 20050720
  Receipt Date: 20050711
  Transmission Date: 20060218
  Serious: Yes (Hospitalization, Other)
  Sender: FDA-Public Use
  Company Number: 2005060276

PATIENT
  Sex: Male

DRUGS (2)
  1. CABERGOLINE [Suspect]
     Indication: PARKINSON'S DISEASE
     Dosage: 2 MG (2 MG, DAILY), ORAL
     Route: 048
     Dates: start: 20050201, end: 20050401
  2. SINEMET [Concomitant]

REACTIONS (5)
  - LUNG INFILTRATION [None]
  - PLEURAL EFFUSION [None]
  - PLEURAL INFECTION [None]
  - RED BLOOD CELL SEDIMENTATION RATE INCREASED [None]
  - TUBERCULOSIS [None]
